FAERS Safety Report 4589433-0 (Version None)
Quarter: 2005Q1

REPORT INFORMATION
  Report Type: 
  Country: None (occurrence: None)
  Receive Date: 20050216
  Receipt Date: 20050209
  Transmission Date: 20050727
  Serious: Yes (Hospitalization)
  Sender: FDA-Public Use
  Company Number: 2005UW02251

PATIENT
  Age: 79 Year
  Sex: Female
  Weight: 70.76 kg

DRUGS (3)
  1. IRESSA [Suspect]
     Indication: LUNG NEOPLASM MALIGNANT
     Dosage: 250 MG PO
     Route: 048
     Dates: start: 20050101
  2. IRESSA [Suspect]
     Indication: SMALL CELL LUNG CANCER STAGE UNSPECIFIED
     Dosage: 250 MG PO
     Route: 048
     Dates: start: 20050101
  3. TOPROL-XL [Concomitant]

REACTIONS (3)
  - DIARRHOEA [None]
  - PNEUMONIA [None]
  - VOMITING [None]
